FAERS Safety Report 18608828 (Version 1)
Quarter: 2020Q4

REPORT INFORMATION
  Report Type: Report from Study
  Country: BG (occurrence: BG)
  Receive Date: 20201213
  Receipt Date: 20201213
  Transmission Date: 20210114
  Serious: Yes (Hospitalization)
  Sender: FDA-Public Use
  Company Number: BG-JNJFOC-20201219243

PATIENT
  Age: 51 Year
  Sex: Male
  Weight: 118 kg

DRUGS (4)
  1. NEOSARA CO [Concomitant]
     Dosage: 40/12 MG
  2. LACIPIL [Concomitant]
     Active Substance: LACIDIPINE
  3. STELARA [Suspect]
     Active Substance: USTEKINUMAB
     Indication: PSORIASIS
     Route: 058
     Dates: start: 201812, end: 20201106
  4. ASPIRIN PROTECT [Concomitant]
     Active Substance: ASPIRIN

REACTIONS (1)
  - COVID-19 pneumonia [Recovered/Resolved]

NARRATIVE: CASE EVENT DATE: 20201116
